FAERS Safety Report 5732717-0 (Version None)
Quarter: 2008Q2

REPORT INFORMATION
  Report Type: 
  Country: None (occurrence: None)
  Receive Date: 20080509
  Receipt Date: 20080428
  Transmission Date: 20081010
  Serious: Yes (Death)
  Sender: FDA-Public Use
  Company Number: LB-BAYER-200816329GPV

PATIENT

DRUGS (1)
  1. FLUDARA [Suspect]
     Indication: CHRONIC LYMPHOCYTIC LEUKAEMIA
     Dosage: UNIT DOSE: 25 MG/M2
     Route: 042
     Dates: start: 20070127, end: 20070530

REACTIONS (1)
  - CARDIO-RESPIRATORY ARREST [None]
